FAERS Safety Report 25755660 (Version 1)
Quarter: 2025Q3

REPORT INFORMATION
  Report Type: Spontaneous
  Country: US (occurrence: US)
  Receive Date: 20250903
  Receipt Date: 20250903
  Transmission Date: 20251021
  Serious: Yes (Life-Threatening, Hospitalization, Other)
  Sender: PFIZER
  Company Number: US-PFIZER INC-202500173832

PATIENT
  Age: 26 Year
  Sex: Female

DRUGS (3)
  1. ROPIVACAINE HYDROCHLORIDE [Suspect]
     Active Substance: ROPIVACAINE HYDROCHLORIDE
     Indication: Anaesthesia
     Route: 008
  2. LIDOCAINE [Concomitant]
     Active Substance: LIDOCAINE
     Indication: Anaesthesia
  3. EPINEPHRINE [Concomitant]
     Active Substance: EPINEPHRINE
     Indication: Anaesthesia

REACTIONS (3)
  - Respiratory depression [Recovered/Resolved]
  - Unresponsive to stimuli [Recovered/Resolved]
  - Incorrect route of product administration [Unknown]
